FAERS Safety Report 24235974 (Version 1)
Quarter: 2024Q3

REPORT INFORMATION
  Report Type: Spontaneous
  Country: US (occurrence: US)
  Receive Date: 20240822
  Receipt Date: 20240822
  Transmission Date: 20241017
  Serious: Yes (Other)
  Sender: NOVO NORDISK
  Company Number: US-NOVOPROD-1270265

PATIENT
  Sex: Female

DRUGS (2)
  1. NOVOLOG [Suspect]
     Active Substance: INSULIN ASPART
     Indication: Type 2 diabetes mellitus
     Dosage: 55 IU, TID (SLIDING SCALE)
     Route: 058
     Dates: start: 20030401
  2. NOVOLOG [Suspect]
     Active Substance: INSULIN ASPART
     Dosage: 55 IU, TID (SLIDING SCALE)
     Route: 058

REACTIONS (1)
  - Cataract operation [Recovered/Resolved]
